FAERS Safety Report 6370049-0 (Version None)
Quarter: 2009Q3

REPORT INFORMATION
  Report Type: 
  Country: None (occurrence: None)
  Receive Date: 20090923
  Receipt Date: 20070605
  Transmission Date: 20100115
  Serious: No
  Sender: FDA-Public Use
  Company Number: US-ASTRAZENECA-2006UW21244

PATIENT
  Age: 14146 Day
  Sex: Female
  Weight: 85.7 kg

DRUGS (53)
  1. SEROQUEL [Suspect]
     Indication: SCHIZOPHRENIA
     Route: 048
     Dates: start: 20030501
  2. SEROQUEL [Suspect]
     Indication: DEPRESSION
     Route: 048
     Dates: start: 20030501
  3. SEROQUEL [Suspect]
     Dosage: 25 MG TO 300 MG
     Route: 048
     Dates: start: 20021210
  4. SEROQUEL [Suspect]
     Dosage: 25 MG TO 300 MG
     Route: 048
     Dates: start: 20021210
  5. AMITRIP [Concomitant]
     Route: 065
  6. DEMEROL [Concomitant]
     Dosage: 50-75 MG/ML
     Route: 065
  7. AXID [Concomitant]
     Route: 065
  8. LIPITOR [Concomitant]
     Dosage: 10-40 MG
     Route: 048
  9. ACTOS [Concomitant]
     Dosage: 30-45 MG
     Route: 048
  10. CLONAZEPAM [Concomitant]
     Dosage: 0.5-1 MG
     Route: 065
  11. LOVASTATIN [Concomitant]
     Route: 048
  12. GLYBURIDE AND METFORMIN HCL [Concomitant]
     Dosage: 5/500 TWICE A DAY
     Route: 048
  13. PRILOSEC OTC [Concomitant]
     Route: 065
  14. PREVACID [Concomitant]
     Route: 065
  15. GEODON [Concomitant]
     Route: 065
  16. SULFAMETHOXAZOLE [Concomitant]
     Route: 065
  17. RANITIDINE [Concomitant]
     Route: 048
  18. RANITIDINE [Concomitant]
     Route: 065
  19. CLOBETASOL 0.05 PERCENT OINT [Concomitant]
     Route: 065
  20. ACIPHEX [Concomitant]
     Route: 065
  21. LEXAPRO [Concomitant]
     Route: 065
  22. HYDROXYZINE PAM [Concomitant]
     Route: 065
  23. GLUCOTROL XL [Concomitant]
     Dosage: 5-10 MG TWICE DAILY
     Route: 048
  24. HYOSCYAMINE [Concomitant]
     Dosage: 0.125-0.375 MG
     Route: 065
  25. CORTOMYCIN EAR SUSPENSION [Concomitant]
     Route: 065
  26. PAXIL [Concomitant]
     Route: 065
  27. CONCERTA [Concomitant]
     Route: 065
  28. REMERON [Concomitant]
     Route: 065
  29. RISPERDAL [Concomitant]
     Route: 065
  30. FLONASE 0.05 PERCENT NASAL SPRAY [Concomitant]
     Route: 065
  31. CHLORHEXIDINE 0.12 PERCENT RINSE [Concomitant]
     Route: 065
  32. PENICILLIN VK [Concomitant]
     Route: 065
  33. PROTONIX [Concomitant]
     Route: 065
  34. WELLBUTRIN XL [Concomitant]
     Route: 065
  35. TRAZODONE [Concomitant]
     Route: 065
  36. LORAZEPAM [Concomitant]
     Route: 065
  37. EFFEXOR XR [Concomitant]
     Route: 065
  38. NEXIUM [Concomitant]
     Route: 065
  39. ZYRTEC-D 12 HOUR [Concomitant]
     Route: 065
  40. PERPHENAMITRIP [Concomitant]
     Dosage: 4/25, 4 TABLETS AT BEDTIME
     Route: 065
  41. ALBUTEROL [Concomitant]
     Dosage: 0.83 MG/ML
     Route: 065
  42. TRAMADOL HCL [Concomitant]
     Route: 048
  43. DIFFERIN 0.1 PERCENT [Concomitant]
     Route: 065
  44. BENADRYL [Concomitant]
     Route: 065
  45. LORCET-HD [Concomitant]
     Dosage: 5/500-7.5/650
     Route: 065
  46. COLDEC D [Concomitant]
     Route: 065
  47. AMLACTIN 12 PERCENT CREAM [Concomitant]
     Route: 065
  48. PROPOXYPHENE NAPSYLATE AND ACETAMINOPHEN [Concomitant]
     Dosage: 100-650
     Route: 065
  49. AVANDIA [Concomitant]
     Route: 065
  50. ZYPREXA [Concomitant]
     Dosage: 2.5-10 MG
     Route: 065
  51. PROMETHAZINE [Concomitant]
     Route: 065
  52. AMARYL [Concomitant]
     Route: 048
  53. GLUCOPHAGE [Concomitant]
     Route: 065

REACTIONS (9)
  - ABSCESS [None]
  - ANXIETY [None]
  - COUGH [None]
  - DELUSION [None]
  - DIABETES MELLITUS [None]
  - EYE PAIN [None]
  - FOLLICULITIS [None]
  - NASOPHARYNGITIS [None]
  - PELVIC PAIN [None]
